FAERS Safety Report 22389167 (Version 1)
Quarter: 2023Q2

REPORT INFORMATION
  Report Type: Spontaneous
  Country: ID (occurrence: ID)
  Receive Date: 20230531
  Receipt Date: 20230531
  Transmission Date: 20230722
  Serious: Yes (Hospitalization)
  Sender: FDA-Public Use
  Company Number: ID-SUN PHARMACEUTICAL INDUSTRIES LTD-2023RR-389920

PATIENT
  Age: 37 Year
  Sex: Female

DRUGS (9)
  1. FLUCONAZOLE [Suspect]
     Active Substance: FLUCONAZOLE
     Indication: Infection
     Dosage: 800 MILLIGRAM, QD
     Route: 065
  2. FLUCONAZOLE [Suspect]
     Active Substance: FLUCONAZOLE
     Dosage: 400 MILLIGRAM, QD
     Route: 065
  3. PANTOPRAZOLE [Suspect]
     Active Substance: PANTOPRAZOLE
     Indication: Gastrooesophageal reflux disease
     Dosage: 40 MILLIGRAM, BID, INJECTION
     Route: 065
  4. EPINEPHRINE [Suspect]
     Active Substance: EPINEPHRINE
     Indication: Laryngeal oedema
     Dosage: UNK
     Route: 065
  5. METHYLPREDNISOLONE [Suspect]
     Active Substance: METHYLPREDNISOLONE
     Indication: Laryngeal oedema
     Dosage: 125 MILLIGRAM, TID
     Route: 065
  6. FENTANYL [Suspect]
     Active Substance: FENTANYL
     Indication: Endotracheal intubation
     Dosage: 1 MICROGRAM/KILOGRAM, BW
     Route: 065
  7. PROPOFOL [Suspect]
     Active Substance: PROPOFOL
     Indication: Endotracheal intubation
     Dosage: 1.5 MILLIGRAM/KILOGRAM, BW
     Route: 065
  8. CEFUROXIME [Suspect]
     Active Substance: CEFUROXIME
     Indication: Pneumonia
     Dosage: 1 GRAM, TID, INJECTION
     Route: 065
  9. FUROSEMIDE [Suspect]
     Active Substance: FUROSEMIDE
     Indication: Product used for unknown indication
     Dosage: 20 MILLIGRAM, INJECTION
     Route: 065

REACTIONS (3)
  - Exposure during pregnancy [Recovering/Resolving]
  - Condition aggravated [Recovering/Resolving]
  - Drug ineffective [Recovering/Resolving]
